FAERS Safety Report 4580235-8 (Version None)
Quarter: 2005Q1

REPORT INFORMATION
  Report Type: 
  Country: None (occurrence: None)
  Receive Date: 20050214
  Receipt Date: 20050208
  Transmission Date: 20050727
  Serious: Yes (Other)
  Sender: FDA-Public Use
  Company Number: US-GLAXOSMITHKLINE-A0544531A

PATIENT
  Age: 6 Year
  Sex: Male

DRUGS (3)
  1. WELLBUTRIN [Suspect]
     Indication: ABNORMAL BEHAVIOUR
     Route: 048
     Dates: start: 20040201
  2. METADATE CD [Concomitant]
  3. CLONIDINE [Concomitant]

REACTIONS (4)
  - HALLUCINATION [None]
  - INSOMNIA [None]
  - MEDICATION ERROR [None]
  - PHARMACEUTICAL PRODUCT COMPLAINT [None]
